FAERS Safety Report 6688966-0 (Version None)
Quarter: 2010Q2

REPORT INFORMATION
  Report Type: 
  Country: None (occurrence: None)
  Receive Date: 20100420
  Receipt Date: 20100409
  Transmission Date: 20101027
  Serious: Yes (Life-Threatening, Hospitalization)
  Sender: FDA-Public Use
  Company Number: FR-KINGPHARMUSA00001-K201000115

PATIENT
  Age: 62 Year
  Sex: Female

DRUGS (11)
  1. ALTACE [Suspect]
     Dosage: 10 MG, QD
     Route: 048
     Dates: start: 20060101, end: 20091027
  2. ALTACE [Suspect]
     Dosage: 1.25 MG, QD
     Dates: start: 20091201
  3. NEBIVOLOL [Suspect]
     Dosage: 5 MG, QD
     Route: 048
     Dates: start: 20071201, end: 20091028
  4. ATHYMIL [Suspect]
     Dosage: 60 MG, QD
     Route: 048
     Dates: start: 20060101, end: 20091029
  5. ESIDRIX [Suspect]
     Dosage: 25 MG, QD
     Route: 048
     Dates: start: 20081201, end: 20091029
  6. TETRAZEPAM [Suspect]
     Dosage: 50 MG, QD
     Route: 048
     Dates: start: 20090601, end: 20091027
  7. LYRICA [Suspect]
     Dosage: 300 MG, BID
     Route: 048
     Dates: start: 20081001, end: 20091023
  8. STRUCTUM [Concomitant]
     Dosage: 1000 MG, UNK
     Dates: start: 20090801, end: 20091023
  9. CALTRATE +D [Concomitant]
     Dosage: 2 DF, QD
     Dates: start: 20070101
  10. OXYCONTIN [Concomitant]
     Dosage: 40 MG, UNK
     Dates: start: 20090701
  11. OXYCONTIN [Concomitant]
     Dosage: 20 MG, UNK
     Dates: start: 20090701

REACTIONS (10)
  - ABDOMINAL WALL CYST [None]
  - ASTHENIA [None]
  - CARDIOMEGALY [None]
  - EPISTAXIS [None]
  - FEBRILE BONE MARROW APLASIA [None]
  - HAEMATOMA [None]
  - PANCYTOPENIA [None]
  - PORTAL HYPERTENSION [None]
  - PULMONARY ALVEOLAR MICROLITHIASIS [None]
  - PYREXIA [None]
